FAERS Safety Report 7269319-3 (Version None)
Quarter: 2011Q1

REPORT INFORMATION
  Report Type: 
  Country: None (occurrence: None)
  Receive Date: 20110124
  Receipt Date: 20110110
  Transmission Date: 20110831
  Serious: Yes (Other)
  Sender: FDA-Public Use
  Company Number: 1000018216

PATIENT
  Age: 70 Year
  Sex: Male

DRUGS (1)
  1. MEMANTINE [Suspect]

REACTIONS (2)
  - CONDITION AGGRAVATED [None]
  - EPILEPSY [None]
